FAERS Safety Report 6218980-0 (Version None)
Quarter: 2009Q2

REPORT INFORMATION
  Report Type: 
  Country: None (occurrence: None)
  Receive Date: 20090608
  Receipt Date: 20090603
  Transmission Date: 20091009
  Serious: Yes (Death)
  Sender: FDA-Public Use
  Company Number: PHHY2009JP22201

PATIENT
  Age: 73 Year
  Sex: Male

DRUGS (2)
  1. IMATINIB MESYLATE [Suspect]
     Indication: CHRONIC MYELOID LEUKAEMIA
     Dosage: 400 MG, UNK
     Dates: start: 20060101
  2. IMATINIB MESYLATE [Suspect]
     Dosage: 100 MG, UNK

REACTIONS (3)
  - CONCOMITANT DISEASE PROGRESSION [None]
  - DIARRHOEA [None]
  - OESOPHAGEAL CARCINOMA [None]
